FAERS Safety Report 5635969-0 (Version None)
Quarter: 2008Q1

REPORT INFORMATION
  Report Type: 
  Country: None (occurrence: None)
  Receive Date: 20080224
  Receipt Date: 20080215
  Transmission Date: 20080703
  Serious: Yes (Other)
  Sender: FDA-Public Use
  Company Number: PHBS2008DE02429

PATIENT
  Age: 72 Year
  Sex: Female

DRUGS (1)
  1. ZOLEDRONIC ACID [Suspect]
     Indication: METASTASES TO BONE
     Dosage: UNK, QMO
     Route: 042

REACTIONS (9)
  - IMPAIRED HEALING [None]
  - ORAL CAVITY FISTULA [None]
  - OSTEONECROSIS [None]
  - PEPTOSTREPTOCOCCUS INFECTION [None]
  - PURULENCE [None]
  - SINUS DISORDER [None]
  - SINUSITIS [None]
  - SURGERY [None]
  - TOOTH EXTRACTION [None]
